FAERS Safety Report 7870241 (Version 3)
Quarter: 2012Q4

REPORT INFORMATION
  Report Type: 
  Country: US (occurrence: US)
  Receive Date: 20110324
  Receipt Date: 20120829
  Transmission Date: 20130627
  Serious: Yes (Hospitalization)
  Sender: FDA-Public Use
  Company Number: US-BAYER-2011-023521

PATIENT
  Age: 45 Year
  Sex: Female
  Weight: 113 kg

DRUGS (10)
  1. YASMIN [Suspect]
     Indication: MENSTRUAL CYCLE MANAGEMENT
     Dosage: UNK
     Dates: start: 200210, end: 200211
  2. XANAX [Concomitant]
     Dosage: UNK UNK, PRN
     Dates: start: 2000
  3. DECADRON-LA [Concomitant]
     Dosage: 1 ml, UNK
     Route: 030
     Dates: start: 20020814
  4. KENALOG [Concomitant]
     Dosage: 1 ml, UNK
     Route: 030
     Dates: start: 20020814
  5. BEXTRA [Concomitant]
     Dosage: 10 mg, QD
     Dates: start: 20020814
  6. BUMEX [Concomitant]
     Dosage: 1 mg, PRN
     Dates: start: 20020822
  7. XENICAL [Concomitant]
     Dosage: 1 UNK, UNK
     Dates: start: 20020822
  8. VIOXX [Concomitant]
     Dosage: 25 mg, QD
     Dates: start: 20021015
  9. DYAZIDE [Concomitant]
     Dosage: UNK
     Dates: start: 20021113
  10. TYLENOL #3 [Concomitant]

REACTIONS (3)
  - Pulmonary embolism [None]
  - Deep vein thrombosis [None]
  - Injury [None]
